FAERS Safety Report 10729326 (Version 1)
Quarter: 2015Q1

REPORT INFORMATION
  Report Type: Spontaneous
  Country: US (occurrence: None)
  Receive Date: 20150120
  Receipt Date: 20150120
  Transmission Date: 20150721
  Serious: Yes (Hospitalization, Disabling)
  Sender: FDA-Public Use
  Company Number: None

PATIENT
  Age: 56 Year
  Sex: Male
  Weight: 79.38 kg

DRUGS (2)
  1. WELCHOL [Suspect]
     Active Substance: COLESEVELAM HYDROCHLORIDE
     Indication: BLOOD TRIGLYCERIDES INCREASED
     Dosage: 2 PILLS??ABOUT 6 YEARS
     Route: 048
  2. WELCHOL [Suspect]
     Active Substance: COLESEVELAM HYDROCHLORIDE
     Indication: BLOOD CHOLESTEROL INCREASED
     Dosage: 2 PILLS??ABOUT 6 YEARS
     Route: 048

REACTIONS (6)
  - Dyspepsia [None]
  - Paranasal sinus hypersecretion [None]
  - Feeling abnormal [None]
  - Arthralgia [None]
  - Muscle disorder [None]
  - Dizziness [None]

NARRATIVE: CASE EVENT DATE: 20110426
